FAERS Safety Report 24781123 (Version 1)
Quarter: 2024Q4

REPORT INFORMATION
  Report Type: Spontaneous
  Country: US (occurrence: US)
  Receive Date: 20241227
  Receipt Date: 20241227
  Transmission Date: 20250115
  Serious: Yes (Other)
  Sender: BIOVITRUM
  Company Number: US-BIOVITRUM-2024-US-016522

PATIENT
  Age: 66 Year
  Sex: Male

DRUGS (1)
  1. VONJO [Suspect]
     Active Substance: PACRITINIB
     Indication: Prostate cancer
     Dosage: DAILY
     Route: 048

REACTIONS (2)
  - Hallucination [Unknown]
  - Dysuria [Unknown]
